FAERS Safety Report 24753018 (Version 1)
Quarter: 2024Q4

REPORT INFORMATION
  Report Type: Spontaneous
  Country: US (occurrence: US)
  Receive Date: 20241219
  Receipt Date: 20241219
  Transmission Date: 20250115
  Serious: No
  Sender: MISSION PHARMACAL COMPANY
  Company Number: US-Mission Pharmacal Company-2167401

PATIENT
  Age: 76 Year
  Sex: Female

DRUGS (9)
  1. UROCIT-K [Suspect]
     Active Substance: POTASSIUM CITRATE
     Indication: Cystinuria
  2. THIOLA EC [Concomitant]
     Active Substance: TIOPRONIN
     Dates: start: 20190907
  3. KLOR-CON M20 [Concomitant]
     Active Substance: POTASSIUM CHLORIDE
  4. HYDROCHLOROTHIAZIDE [Concomitant]
     Active Substance: HYDROCHLOROTHIAZIDE
  5. PANTOPRAZOLE SODIUM [Concomitant]
     Active Substance: PANTOPRAZOLE SODIUM
  6. MELOXICAM [Concomitant]
     Active Substance: MELOXICAM
  7. METOPROLOL TARTRATE [Concomitant]
     Active Substance: METOPROLOL TARTRATE
  8. NEXIUM [Concomitant]
     Active Substance: ESOMEPRAZOLE MAGNESIUM
  9. AMLODIPINE BESYLATE [Concomitant]
     Active Substance: AMLODIPINE BESYLATE

REACTIONS (1)
  - Drug ineffective [Unknown]
